FAERS Safety Report 13569934 (Version 2)
Quarter: 2017Q2

REPORT INFORMATION
  Report Type: Report from Study
  Country: CN (occurrence: CN)
  Receive Date: 20170522
  Receipt Date: 20170522
  Transmission Date: 20170830
  Serious: Yes (Other)
  Sender: FDA-Public Use
  Company Number: CN-MYLANLABS-2017M1030948

PATIENT

DRUGS (5)
  1. NATAMYCIN [Concomitant]
     Active Substance: NATAMYCIN
     Indication: KERATITIS FUNGAL
     Dosage: 5% AS EYE DROPS
     Route: 031
  2. FLUCONAZOLE. [Suspect]
     Active Substance: FLUCONAZOLE
     Indication: KERATITIS FUNGAL
     Dosage: 0.2% AS INTRASTROMAL INJECTIONS
     Route: 031
  3. PROXYMETACAINE [Concomitant]
     Indication: KERATITIS FUNGAL
     Dosage: 0.5% AS EYE DROPS
     Route: 031
  4. POVIDONE-IODINE. [Concomitant]
     Active Substance: POVIDONE-IODINE
     Indication: KERATITIS FUNGAL
     Dosage: 0.5% AS EYE DROPS
     Route: 031
  5. FLUCONAZOLE. [Suspect]
     Active Substance: FLUCONAZOLE
     Indication: KERATITIS FUNGAL
     Dosage: 0.5% AS EYE DROPS
     Route: 031

REACTIONS (2)
  - Endophthalmitis [Unknown]
  - Corneal perforation [Unknown]
